FAERS Safety Report 6355864-1 (Version None)
Quarter: 2009Q3

REPORT INFORMATION
  Report Type: 
  Country: None (occurrence: None)
  Receive Date: 20090915
  Receipt Date: 20090904
  Transmission Date: 20100115
  Serious: Yes (Other)
  Sender: FDA-Public Use
  Company Number: US-ELI_LILLY_AND_COMPANY-US200908006505

PATIENT
  Sex: Female

DRUGS (2)
  1. FORTEO [Suspect]
     Dosage: UNK, UNK
     Dates: start: 20090812
  2. ANTIHYPERTENSIVES [Concomitant]

REACTIONS (11)
  - ATRIAL FIBRILLATION [None]
  - BACK INJURY [None]
  - BACK PAIN [None]
  - BONE PAIN [None]
  - FALL [None]
  - FEAR [None]
  - FEAR OF EATING [None]
  - FEELING ABNORMAL [None]
  - INJECTION SITE INJURY [None]
  - MUSCULOSKELETAL DISCOMFORT [None]
  - NAUSEA [None]
